FAERS Safety Report 13957449 (Version 1)
Quarter: 2017Q3

REPORT INFORMATION
  Report Type: Spontaneous
  Country: GB (occurrence: GB)
  Receive Date: 20170911
  Receipt Date: 20170911
  Transmission Date: 20171128
  Serious: Yes (Hospitalization, Congenital Anomaly)
  Sender: FDA-Public Use
  Company Number: GB-SA-2017SA165024

PATIENT
  Sex: Female

DRUGS (3)
  1. ACTRAPID [Concomitant]
     Active Substance: INSULIN HUMAN
     Route: 064
  2. NOVORAPID [Concomitant]
     Active Substance: INSULIN ASPART
     Route: 064
  3. LANTUS [Suspect]
     Active Substance: INSULIN GLARGINE
     Indication: FOETAL EXPOSURE DURING PREGNANCY
     Dosage: DOSE:46 UNIT(S)
     Route: 064
     Dates: start: 2013

REACTIONS (7)
  - Foetal exposure during pregnancy [Unknown]
  - Jaundice [Unknown]
  - Congenital bladder anomaly [Unknown]
  - Caudal regression syndrome [Unknown]
  - Tachypnoea [Unknown]
  - Gastrointestinal malformation [Unknown]
  - Perineal ulceration [Unknown]

NARRATIVE: CASE EVENT DATE: 2014
